FAERS Safety Report 19378311 (Version 1)
Quarter: 2021Q2

REPORT INFORMATION
  Report Type: Spontaneous
  Country: US (occurrence: US)
  Receive Date: 20210605
  Receipt Date: 20210605
  Transmission Date: 20210717
  Serious: Yes (Other)
  Sender: FDA-Public Use
  Company Number: US-LUPIN PHARMACEUTICALS INC.-2021-08407

PATIENT
  Age: 15 Year
  Sex: Female
  Weight: 68.3 kg

DRUGS (2)
  1. LISINOPRIL. [Suspect]
     Active Substance: LISINOPRIL
     Indication: NEPHROPATHY TOXIC
     Dosage: 10 MILLIGRAM, QD
     Route: 065
  2. LISINOPRIL. [Suspect]
     Active Substance: LISINOPRIL
     Indication: NEPHROTIC SYNDROME
     Dosage: 7.5 MILLIGRAM, QD
     Route: 065

REACTIONS (1)
  - Dizziness [Unknown]
